FAERS Safety Report 26167528 (Version 1)
Quarter: 2025Q4

REPORT INFORMATION
  Report Type: Spontaneous
  Country: EU (occurrence: EU)
  Receive Date: 20251217
  Receipt Date: 20251217
  Transmission Date: 20260118
  Serious: Yes (Life-Threatening, Hospitalization)
  Sender: CHEPLAPHARM
  Company Number: None

PATIENT
  Age: 59 Year
  Sex: Female

DRUGS (12)
  1. OLANZAPINE [Suspect]
     Active Substance: OLANZAPINE
  2. BROMAZEPAM [Suspect]
     Active Substance: BROMAZEPAM
  3. OMEPRAZOLE [Suspect]
     Active Substance: OMEPRAZOLE
  4. QUETIAPINE [Suspect]
     Active Substance: QUETIAPINE
  5. CANNABIS SATIVA SUBSP. INDICA TOP [Suspect]
     Active Substance: CANNABIS SATIVA SUBSP. INDICA TOP
  6. DIAZEPAM [Suspect]
     Active Substance: DIAZEPAM
  7. LORMETAZEPAM [Suspect]
     Active Substance: LORMETAZEPAM
  8. COCAINE [Suspect]
     Active Substance: COCAINE
  9. OXAZEPAM [Suspect]
     Active Substance: OXAZEPAM
  10. METHADONE [Suspect]
     Active Substance: METHADONE HYDROCHLORIDE
  11. SUBUTEX [Suspect]
     Active Substance: BUPRENORPHINE HYDROCHLORIDE
     Indication: Drug dependence
  12. RAMIPRIL [Suspect]
     Active Substance: RAMIPRIL

REACTIONS (7)
  - Acute respiratory distress syndrome [Recovered/Resolved]
  - Hyperthermia [Recovered/Resolved]
  - Tachypnoea [Recovered/Resolved]
  - Tachycardia [Recovered/Resolved]
  - Pneumonia pneumococcal [Unknown]
  - Drug use disorder [Unknown]
  - Bronchopneumopathy [Unknown]

NARRATIVE: CASE EVENT DATE: 20250820
